FAERS Safety Report 4544288-5 (Version None)
Quarter: 2004Q4

REPORT INFORMATION
  Report Type: 
  Country: None (occurrence: None)
  Receive Date: 20041230
  Receipt Date: 20041224
  Transmission Date: 20050328
  Serious: Yes (Hospitalization, Disabling, Other)
  Sender: FDA-Public Use
  Company Number: 2004-12-0011

PATIENT
  Age: 44 Year
  Sex: Male

DRUGS (3)
  1. CELESTONE TAB [Suspect]
     Indication: EAR DISORDER
     Dosage: 0.5 MG QD ORAL
     Route: 048
     Dates: start: 20040403, end: 20040409
  2. CELESTONE TAB [Suspect]
     Indication: NASOPHARYNGEAL DISORDER
     Dosage: 0.5 MG QD ORAL
     Route: 048
     Dates: start: 20040403, end: 20040409
  3. FLIXONASE (FLUTICASONE PROPIONATE) [Concomitant]

REACTIONS (3)
  - ENCEPHALITIS VIRAL [None]
  - MARKEDLY REDUCED DIETARY INTAKE [None]
  - WEIGHT DECREASED [None]
